FAERS Safety Report 6652874-1 (Version None)
Quarter: 2010Q1

REPORT INFORMATION
  Report Type: 
  Country: None (occurrence: None)
  Receive Date: 20100325
  Receipt Date: 20100325
  Transmission Date: 20100710
  Serious: Yes (Other)
  Sender: FDA-Public Use
  Company Number: None

PATIENT
  Sex: Male
  Weight: 81.6475 kg

DRUGS (1)
  1. LEVAQUIN [Suspect]
     Indication: PROSTATITIS
     Dosage: 750 MG ONE PER DAY PO
     Route: 048
     Dates: start: 20100220, end: 20100226

REACTIONS (3)
  - BURNING SENSATION [None]
  - NEUROPATHY PERIPHERAL [None]
  - PARAESTHESIA [None]
